FAERS Safety Report 18661571 (Version 1)
Quarter: 2020Q4

REPORT INFORMATION
  Report Type: Spontaneous
  Country: US (occurrence: US)
  Receive Date: 20201224
  Receipt Date: 20201224
  Transmission Date: 20210114
  Serious: Yes (Other)
  Sender: FDA-Public Use
  Company Number: None

PATIENT
  Age: 55 Month
  Sex: Male
  Weight: 109.8 kg

DRUGS (16)
  1. METOPROLOL. [Concomitant]
     Active Substance: METOPROLOL
  2. NOVOLOG [Concomitant]
     Active Substance: INSULIN ASPART
  3. VITAMIN D [Concomitant]
     Active Substance: VITAMIN D NOS
  4. POTASSIUM [Concomitant]
     Active Substance: POTASSIUM
  5. ISOSORBIDE. [Concomitant]
     Active Substance: ISOSORBIDE
  6. ASPIRIN 81 MILLIGRAM [Concomitant]
  7. LISINOPRIL. [Concomitant]
     Active Substance: LISINOPRIL
  8. DIABE TUT IC METER [Concomitant]
  9. FLOMAX [Concomitant]
     Active Substance: TAMSULOSIN HYDROCHLORIDE
  10. IRON PILL [Concomitant]
     Active Substance: IRON
  11. NOVOLOG [Suspect]
     Active Substance: INSULIN ASPART
     Indication: DIABETES MELLITUS
     Route: 058
  12. TOUJEO MAX [Concomitant]
     Active Substance: INSULIN GLARGINE
  13. ZOLOFT [Concomitant]
     Active Substance: SERTRALINE HYDROCHLORIDE
  14. VITAMIN D [Concomitant]
     Active Substance: VITAMIN D NOS
  15. PANTOPRAZOLE [Concomitant]
     Active Substance: PANTOPRAZOLE
  16. TRULICITY [Concomitant]
     Active Substance: DULAGLUTIDE

REACTIONS (4)
  - Memory impairment [None]
  - Headache [None]
  - Dry mouth [None]
  - Taste disorder [None]

NARRATIVE: CASE EVENT DATE: 20201122
